FAERS Safety Report 24141903 (Version 1)
Quarter: 2024Q3

REPORT INFORMATION
  Report Type: Spontaneous
  Country: US (occurrence: None)
  Receive Date: 20240726
  Receipt Date: 20240726
  Transmission Date: 20241017
  Serious: Yes (Hospitalization)
  Sender: Public
  Company Number: None

PATIENT
  Sex: Female

DRUGS (1)
  1. PROLIA [Suspect]
     Active Substance: DENOSUMAB
     Indication: Osteoporosis
     Dosage: OTHER FREQUENCY : EVERY6MONTHS;?
     Route: 042
     Dates: start: 20240613

REACTIONS (7)
  - Headache [None]
  - Cerebrovascular accident [None]
  - Cardiac disorder [None]
  - Peripheral swelling [None]
  - Peripheral swelling [None]
  - Rash [None]
  - Back pain [None]
